FAERS Safety Report 5178981-0 (Version None)
Quarter: 2006Q4

REPORT INFORMATION
  Report Type: 
  Country: None (occurrence: None)
  Receive Date: 20061214
  Receipt Date: 20061214
  Transmission Date: 20070319
  Serious: Yes (Other)
  Sender: FDA-Public Use
  Company Number: None

PATIENT
  Sex: Female
  Weight: 58.9676 kg

DRUGS (1)
  1. CIPRO [Suspect]
     Dosage: 500 MG BID PO   X 2 DOSES
     Route: 048
     Dates: start: 20060422

REACTIONS (2)
  - ARTHRALGIA [None]
  - GAIT DISTURBANCE [None]
